FAERS Safety Report 5004011-7 (Version None)
Quarter: 2006Q2

REPORT INFORMATION
  Report Type: 
  Country: None (occurrence: None)
  Receive Date: 20060517
  Receipt Date: 20060508
  Transmission Date: 20061013
  Serious: Yes (Other)
  Sender: FDA-Public Use
  Company Number: PHEH2006US06048

PATIENT
  Sex: Male

DRUGS (4)
  1. ZOMETA [Suspect]
     Indication: METASTATIC RENAL CELL CARCINOMA
     Dosage: 4 MG, Q 1MO
     Dates: start: 20041001, end: 20060301
  2. AVASTIN [Concomitant]
  3. THALIDOMIDE [Concomitant]
  4. DEXAMETHASONE [Concomitant]

REACTIONS (5)
  - BREATH ODOUR [None]
  - DENTAL TREATMENT [None]
  - MOUTH ULCERATION [None]
  - OSTEONECROSIS [None]
  - PAIN [None]
